FAERS Safety Report 7399105-5 (Version None)
Quarter: 2011Q2

REPORT INFORMATION
  Report Type: 
  Country: None (occurrence: None)
  Receive Date: 20110407
  Receipt Date: 20110328
  Transmission Date: 20111010
  Serious: Yes (Other)
  Sender: FDA-Public Use
  Company Number: IL-SANOFI-AVENTIS-2011SA006772

PATIENT
  Age: 23 Year
  Sex: Male

DRUGS (1)
  1. TELFAST [Suspect]
     Indication: RASH
     Route: 048

REACTIONS (1)
  - HALLUCINATION [None]
